APPROVED DRUG PRODUCT: MIRTAZAPINE
Active Ingredient: MIRTAZAPINE
Strength: 30MG
Dosage Form/Route: TABLET;ORAL
Application: A076308 | Product #002
Applicant: ACTAVIS ELIZABETH LLC
Approved: Jun 20, 2003 | RLD: No | RS: No | Type: DISCN